FAERS Safety Report 5322092-8 (Version None)
Quarter: 2007Q2

REPORT INFORMATION
  Report Type: 
  Country: None (occurrence: None)
  Receive Date: 20070507
  Receipt Date: 20070423
  Transmission Date: 20071010
  Serious: Yes (Death, Other)
  Sender: FDA-Public Use
  Company Number: MC200700362

PATIENT

DRUGS (4)
  1. ANGIOMAX [Suspect]
     Dosage: 0.21 MG/KG, HR (MEAN INITIATION DOSE), INTRAVENOUS
     Route: 042
  2. ANGIOMAX [Suspect]
     Dosage: 0.2 MG/KG, HR (MAINTAINED MEAN DOSE), INTRAVENOUS
     Route: 042
  3. ARGATROBAN (ARGATROBAN) [Concomitant]
  4. LEPIRUDIN (LEPIRUDIN) [Concomitant]

REACTIONS (11)
  - ACTIVATED PARTIAL THROMBOPLASTIN TIME PROLONGED [None]
  - DIALYSIS [None]
  - EMBOLISM [None]
  - GASTROINTESTINAL HAEMORRHAGE [None]
  - HAEMORRHAGE [None]
  - HEPARIN-INDUCED THROMBOCYTOPENIA [None]
  - HEPATIC FAILURE [None]
  - INTERNATIONAL NORMALISED RATIO DECREASED [None]
  - ORGAN FAILURE [None]
  - RENAL FAILURE [None]
  - THORACIC HAEMORRHAGE [None]
